FAERS Safety Report 6670756-6 (Version None)
Quarter: 2010Q2

REPORT INFORMATION
  Report Type: 
  Country: None (occurrence: None)
  Receive Date: 20100407
  Receipt Date: 20100330
  Transmission Date: 20101027
  Serious: Yes (Other)
  Sender: FDA-Public Use
  Company Number: PHHY2010DE21068

PATIENT
  Age: 64 Year
  Sex: Female

DRUGS (2)
  1. ESTRADERM [Suspect]
     Dosage: UNK
     Route: 062
  2. RAMIPRIL [Concomitant]
     Indication: HYPERTENSION
     Dosage: UNK

REACTIONS (4)
  - FALL [None]
  - HOT FLUSH [None]
  - HYPERTENSION [None]
  - LOSS OF CONSCIOUSNESS [None]
